FAERS Safety Report 5123139-4 (Version None)
Quarter: 2006Q4

REPORT INFORMATION
  Report Type: 
  Country: None (occurrence: None)
  Receive Date: 20061009
  Receipt Date: 20060928
  Transmission Date: 20070319
  Serious: Yes (Hospitalization)
  Sender: FDA-Public Use
  Company Number: US-JNJFOC-20060402067

PATIENT
  Sex: Female
  Weight: 88.91 kg

DRUGS (5)
  1. DURAGESIC-100 [Suspect]
     Indication: ARTHRITIS
     Route: 062
  2. INSULIN [Concomitant]
     Indication: DIABETES MELLITUS
  3. VALIUM [Concomitant]
  4. VICODIN [Concomitant]
  5. TRISOL [Concomitant]

REACTIONS (3)
  - ACCIDENTAL OVERDOSE [None]
  - DEPRESSED LEVEL OF CONSCIOUSNESS [None]
  - INAPPROPRIATE SCHEDULE OF DRUG ADMINISTRATION [None]
